FAERS Safety Report 12214032 (Version 1)
Quarter: 2016Q1

REPORT INFORMATION
  Report Type: Spontaneous
  Country: US (occurrence: None)
  Receive Date: 20160325
  Receipt Date: 20160325
  Transmission Date: 20160526
  Serious: Yes (Other)
  Sender: FDA-Public Use
  Company Number: None

PATIENT
  Age: 44 Year
  Sex: Female

DRUGS (1)
  1. MYCOPHENOLATE [Suspect]
     Active Substance: MYCOPHENOLIC ACID
     Dosage: ORAL 1 BID
     Route: 048
     Dates: start: 2013

REACTIONS (1)
  - Hypertension [None]

NARRATIVE: CASE EVENT DATE: 20160324
